FAERS Safety Report 10620417 (Version 1)
Quarter: 2014Q4

REPORT INFORMATION
  Report Type: Spontaneous
  Country: US (occurrence: US)
  Receive Date: 20141202
  Receipt Date: 20141202
  Transmission Date: 20150529
  Serious: Yes (Hospitalization, Other)
  Sender: FDA-Public Use
  Company Number: US-ABBVIE-14P-163-1312645-00

PATIENT
  Age: 69 Year
  Sex: Male

DRUGS (1)
  1. ANDROGEL [Suspect]
     Active Substance: TESTOSTERONE
     Indication: BLOOD TESTOSTERONE DECREASED
     Dosage: AS PRESCRIBED
     Route: 061
     Dates: end: 201210

REACTIONS (9)
  - Fear [Unknown]
  - Deep vein thrombosis [Unknown]
  - Thrombosis [Unknown]
  - Cardiovascular disorder [Unknown]
  - Pain [Unknown]
  - Peripheral vascular disorder [Unknown]
  - Anhedonia [Unknown]
  - Economic problem [Unknown]
  - Social problem [Unknown]

NARRATIVE: CASE EVENT DATE: 2012
